FAERS Safety Report 6434727-7 (Version None)
Quarter: 2009Q4

REPORT INFORMATION
  Report Type: 
  Country: None (occurrence: None)
  Receive Date: 20091110
  Receipt Date: 20091027
  Transmission Date: 20100525
  Serious: Yes (Death, Congenital Anomaly)
  Sender: FDA-Public Use
  Company Number: GB-MERCK-0907GBR00027B1

PATIENT
  Age: 0 Day
  Sex: Female
  Weight: 3 kg

DRUGS (3)
  1. ISENTRESS [Suspect]
     Indication: HIV INFECTION
     Route: 064
     Dates: start: 20090310
  2. DARUNAVIR AND RITONAVIR [Concomitant]
     Route: 064
     Dates: start: 20090310
  3. ZIDOVUDINE [Concomitant]
     Route: 064
     Dates: start: 20090318

REACTIONS (2)
  - AORTIC VALVE DISEASE [None]
  - SUDDEN INFANT DEATH SYNDROME [None]
